FAERS Safety Report 5612480-4 (Version None)
Quarter: 2008Q1

REPORT INFORMATION
  Report Type: 
  Country: None (occurrence: None)
  Receive Date: 20080204
  Receipt Date: 20080131
  Transmission Date: 20080703
  Serious: Yes (Hospitalization)
  Sender: FDA-Public Use
  Company Number: US-BRISTOL-MYERS SQUIBB COMPANY-14058341

PATIENT
  Age: 60 Year
  Sex: Male
  Weight: 75 kg

DRUGS (12)
  1. ERBITUX [Suspect]
     Indication: NASOPHARYNGEAL CANCER
     Dates: start: 20071002, end: 20080122
  2. CISPLATIN [Suspect]
     Indication: NASOPHARYNGEAL CANCER
     Dates: start: 20071002, end: 20080122
  3. RADIATION THERAPY [Suspect]
     Indication: NASOPHARYNGEAL CANCER
     Dates: start: 20071208
  4. TEGRETOL [Concomitant]
  5. ZYLOPRIM [Concomitant]
  6. SYNTHROID [Concomitant]
  7. FENTANYL [Concomitant]
  8. XANAX [Concomitant]
  9. COMPAZINE [Concomitant]
  10. ZOFRAN [Concomitant]
  11. MAGNESIUM OXIDE [Concomitant]
  12. ROXICET [Concomitant]

REACTIONS (2)
  - HYPOXIA [None]
  - PNEUMONIA ASPIRATION [None]
